FAERS Safety Report 7450579-0 (Version None)
Quarter: 2011Q2

REPORT INFORMATION
  Report Type: 
  Country: None (occurrence: None)
  Receive Date: 20110502
  Receipt Date: 20090908
  Transmission Date: 20111010
  Serious: Yes (Death, Hospitalization)
  Sender: FDA-Public Use
  Company Number: US-BAYER-200912909NA

PATIENT
  Age: 54 Year
  Sex: Male
  Weight: 91.61 kg

DRUGS (5)
  1. LIPITOR [Concomitant]
     Dosage: 10 MG, QD
     Route: 048
     Dates: start: 20041022
  2. HEPARIN [Concomitant]
     Dosage: UNK
     Route: 042
     Dates: start: 20041203
  3. TRASYLOL [Suspect]
     Indication: CORONARY ARTERY BYPASS
     Dosage: (INITIAL TEST DOSE NEGATIVE)- LOADING DOSE 200,000U
     Route: 042
     Dates: start: 20041203, end: 20041203
  4. TRASYLOL [Suspect]
     Indication: AORTIC VALVE REPLACEMENT
  5. MANNITOL [Concomitant]
     Dosage: UNK
     Route: 042
     Dates: start: 20041203

REACTIONS (3)
  - CARDIAC FAILURE [None]
  - MYOCARDIAL INFARCTION [None]
  - RENAL FAILURE [None]
